FAERS Safety Report 12362827 (Version 1)
Quarter: 2016Q2

REPORT INFORMATION
  Report Type: Spontaneous
  Country: US (occurrence: US)
  Receive Date: 20160512
  Receipt Date: 20160512
  Transmission Date: 20160815
  Serious: No
  Sender: FDA-Public Use
  Company Number: ADR-2014-01233

PATIENT
  Age: 27 Year
  Sex: Male

DRUGS (7)
  1. RISPERIDONE. [Suspect]
     Active Substance: RISPERIDONE
  2. GABAPENTIN. [Suspect]
     Active Substance: GABAPENTIN
  3. LORAZEPAM. [Suspect]
     Active Substance: LORAZEPAM
  4. PROPRANOLOL [Suspect]
     Active Substance: PROPRANOLOL\PROPRANOLOL HYDROCHLORIDE
  5. LIORESAL [Suspect]
     Active Substance: BACLOFEN
     Dosage: 643.4 MCG / DAY
     Route: 037
  6. LAMICTAL [Suspect]
     Active Substance: LAMOTRIGINE
  7. BACLOFEN. [Suspect]
     Active Substance: BACLOFEN
     Route: 048

REACTIONS (2)
  - Muscle spasticity [Not Recovered/Not Resolved]
  - No therapeutic response [Not Recovered/Not Resolved]

NARRATIVE: CASE EVENT DATE: 20140610
